FAERS Safety Report 6619270-4 (Version None)
Quarter: 2010Q1

REPORT INFORMATION
  Report Type: 
  Country: None (occurrence: None)
  Receive Date: 20100303
  Receipt Date: 20100216
  Transmission Date: 20100710
  Serious: No
  Sender: FDA-Public Use
  Company Number: 008888

PATIENT
  Age: 67 Year
  Sex: Male

DRUGS (4)
  1. PLETAL [Suspect]
     Indication: VARICOSE VEIN
     Dosage: 200 MG, DAILY DOSE ORAL
     Route: 048
  2. ARGATROBAN [Concomitant]
  3. OZAGREL SODIUM (OZAGREL SODIUM) INJECTION [Concomitant]
  4. EDARAVONE (EDARAVONE) INJECTION [Concomitant]

REACTIONS (15)
  - ARTERY DISSECTION [None]
  - BRAIN STEM INFARCTION [None]
  - CEREBRAL INFARCTION [None]
  - CONVULSION [None]
  - DYSLALIA [None]
  - DYSPHONIA [None]
  - EXTENSOR PLANTAR RESPONSE [None]
  - FACIAL PALSY [None]
  - GAZE PALSY [None]
  - NEUROLOGICAL EXAMINATION ABNORMAL [None]
  - NUCLEAR MAGNETIC RESONANCE IMAGING BRAIN ABNORMAL [None]
  - OPHTHALMOPLEGIA [None]
  - QUADRIPLEGIA [None]
  - SENSORY DISTURBANCE [None]
  - VISION BLURRED [None]
